FAERS Safety Report 7653438-3 (Version None)
Quarter: 2011Q3

REPORT INFORMATION
  Report Type: 
  Country: None (occurrence: None)
  Receive Date: 20110803
  Receipt Date: 20110729
  Transmission Date: 20111222
  Serious: No
  Sender: FDA-Public Use
  Company Number: US-PFIZER INC-2011173672

PATIENT
  Sex: Female

DRUGS (2)
  1. LYRICA [Suspect]
     Indication: SPINAL CORD DISORDER
     Dosage: UNK
     Route: 048
     Dates: start: 20110701
  2. LYRICA [Suspect]
     Indication: HERPES ZOSTER

REACTIONS (4)
  - SOMNOLENCE [None]
  - DIARRHOEA [None]
  - HYPERSOMNIA [None]
  - VOMITING [None]
